FAERS Safety Report 19595241 (Version 1)
Quarter: 2021Q3

REPORT INFORMATION
  Report Type: Spontaneous
  Country: US (occurrence: US)
  Receive Date: 20210722
  Receipt Date: 20210722
  Transmission Date: 20211014
  Serious: No
  Sender: FDA-Public Use
  Company Number: US-PFIZER INC-2021757694

PATIENT
  Age: 8 Decade
  Sex: Male

DRUGS (1)
  1. NORVASC [Suspect]
     Active Substance: AMLODIPINE BESYLATE
     Dosage: UNK

REACTIONS (4)
  - Peripheral swelling [Unknown]
  - Skin tightness [Unknown]
  - Oedema peripheral [Recovering/Resolving]
  - Rash [Recovering/Resolving]
